FAERS Safety Report 5099584-2 (Version None)
Quarter: 2006Q3

REPORT INFORMATION
  Report Type: 
  Country: None (occurrence: None)
  Receive Date: 20060906
  Receipt Date: 20060821
  Transmission Date: 20061208
  Serious: Yes (Disabling, Other)
  Sender: FDA-Public Use
  Company Number: TRP_0859_2006

PATIENT
  Age: 46 Year
  Sex: Female
  Weight: 56.6996 kg

DRUGS (3)
  1. RIBASPHERE [Suspect]
     Indication: HEPATITIS C
     Dosage: VAR BID PO
     Route: 048
     Dates: start: 20060222
  2. PEGASYS [Suspect]
     Indication: HEPATITIS C
     Dosage: 180 MCG QWK SC
     Route: 058
     Dates: start: 20060222
  3. LOMOTIL [Concomitant]

REACTIONS (9)
  - ANGER [None]
  - ANOREXIA [None]
  - ANXIETY [None]
  - CONDITION AGGRAVATED [None]
  - FATIGUE [None]
  - INSOMNIA [None]
  - IRRITABILITY [None]
  - MIGRAINE [None]
  - WHITE BLOOD CELL COUNT DECREASED [None]
